FAERS Safety Report 24832538 (Version 1)
Quarter: 2025Q1

REPORT INFORMATION
  Report Type: Spontaneous
  Country: NO (occurrence: NO)
  Receive Date: 20250110
  Receipt Date: 20250110
  Transmission Date: 20250409
  Serious: Yes (Disabling, Other)
  Sender: BRISTOL-MYERS SQUIBB COMPANY
  Company Number: None

PATIENT
  Age: 71 Year
  Sex: Male

DRUGS (3)
  1. ELIQUIS [Suspect]
     Active Substance: APIXABAN
     Indication: Atrial fibrillation
     Route: 048
  2. ATACAND [Concomitant]
     Active Substance: CANDESARTAN CILEXETIL
     Indication: Hypertension
  3. ATORVASTATIN XIROMED [Concomitant]
     Indication: Hypercholesterolaemia

REACTIONS (6)
  - Basal ganglia haemorrhage [Recovering/Resolving]
  - Aphasia [Not Recovered/Not Resolved]
  - Hypertension [Recovering/Resolving]
  - Hemiparesis [Recovering/Resolving]
  - Facial paralysis [Recovering/Resolving]
  - Loss of personal independence in daily activities [Recovering/Resolving]

NARRATIVE: CASE EVENT DATE: 20241201
